FAERS Safety Report 21799246 (Version 3)
Quarter: 2023Q1

REPORT INFORMATION
  Report Type: Spontaneous
  Country: DE (occurrence: DE)
  Receive Date: 20221230
  Receipt Date: 20230327
  Transmission Date: 20230418
  Serious: Yes (Other)
  Sender: FDA-Public Use
  Company Number: DE-002147023-NVSC2022DE300738

PATIENT
  Sex: Female

DRUGS (2)
  1. TAMOXIFEN [Suspect]
     Active Substance: TAMOXIFEN
     Indication: Product used for unknown indication
     Dosage: UNK
     Route: 065
  2. COSENTYX [Suspect]
     Active Substance: SECUKINUMAB
     Indication: Product used for unknown indication
     Dosage: UNK
     Route: 065
     Dates: start: 202210

REACTIONS (7)
  - Ureteric cancer [Unknown]
  - Fatigue [Unknown]
  - Malaise [Unknown]
  - Alopecia [Unknown]
  - Swelling face [Unknown]
  - Peripheral swelling [Unknown]
  - Cheilitis [Unknown]

NARRATIVE: CASE EVENT DATE: 20220101
